FAERS Safety Report 25178571 (Version 1)
Quarter: 2025Q2

REPORT INFORMATION
  Report Type: Spontaneous
  Country: US (occurrence: US)
  Receive Date: 20250409
  Receipt Date: 20250409
  Transmission Date: 20250716
  Serious: Yes (Hospitalization)
  Sender: ITALFARMACO
  Company Number: US-ITALFARMACO SPA-2172853

PATIENT
  Age: 20 Year
  Sex: Male
  Weight: 97.52 kg

DRUGS (7)
  1. DUVYZAT [Suspect]
     Active Substance: GIVINOSTAT
     Indication: Duchenne muscular dystrophy
     Dates: start: 20250130
  2. LISINOPRIL [Suspect]
     Active Substance: LISINOPRIL
  3. VITAMIN B [Concomitant]
     Active Substance: VITAMIN B
  4. ALDACTONE [Concomitant]
     Active Substance: SPIRONOLACTONE
  5. ASPIRIN [Concomitant]
     Active Substance: ASPIRIN
  6. CARVEDILOL [Concomitant]
     Active Substance: CARVEDILOL
  7. AMIODARONE HYDROCHLORIDE [Concomitant]
     Active Substance: AMIODARONE HYDROCHLORIDE

REACTIONS (3)
  - Renal injury [Unknown]
  - Ill-defined disorder [Unknown]
  - Blood triglycerides increased [Unknown]
